FAERS Safety Report 5803842-0 (Version None)
Quarter: 2008Q3

REPORT INFORMATION
  Report Type: 
  Country: None (occurrence: None)
  Receive Date: 20080708
  Receipt Date: 20080702
  Transmission Date: 20090109
  Serious: Yes (Other)
  Sender: FDA-Public Use
  Company Number: US-BOEHRINGER INGELHEIM GMBH, GERMANY-2008-BP-10385BP

PATIENT
  Sex: Male

DRUGS (1)
  1. SPIRIVA [Suspect]
     Indication: OCCUPATIONAL EXPOSURE TO TOXIC AGENT
     Route: 055

REACTIONS (7)
  - ARTHROPATHY [None]
  - DRY MOUTH [None]
  - MUSCULOSKELETAL PAIN [None]
  - NOCTURIA [None]
  - RENAL PAIN [None]
  - SEXUAL DYSFUNCTION [None]
  - VISUAL IMPAIRMENT [None]
